FAERS Safety Report 8922391 (Version 2)
Quarter: 2012Q4

REPORT INFORMATION
  Report Type: 
  Country: BR (occurrence: BR)
  Receive Date: 20121123
  Receipt Date: 20121206
  Transmission Date: 20130627
  Serious: Yes (Hospitalization, Other)
  Sender: FDA-Public Use
  Company Number: BR-ABBOTT-12P-020-1008749-00

PATIENT
  Age: 41 None
  Sex: Male
  Weight: 80 kg

DRUGS (8)
  1. DEPAKENE [Suspect]
     Indication: EPILEPSY
     Dosage: 1 tab at morning and 1 tab at night
     Route: 048
     Dates: start: 2000
  2. DEPAKENE [Suspect]
     Dosage: 1 tab at 7a.m.;1 tab at 2 p.m.;1 tab 8pm
     Route: 048
  3. DEPAKENE [Suspect]
     Dosage: 1 tab at 7a.m.;1 tab at 7 p.m.
     Route: 048
  4. CARBAMAZEPINE [Concomitant]
     Indication: PRODUCT USED FOR UNKNOWN INDICATION
  5. CRODAZOL [Concomitant]
     Indication: PRODUCT USED FOR UNKNOWN INDICATION
     Dosage: (?)
  6. FRISIUM [Concomitant]
     Indication: PRODUCT USED FOR UNKNOWN INDICATION
  7. GARDENAL [Concomitant]
     Indication: PRODUCT USED FOR UNKNOWN INDICATION
  8. HIDANTAL [Concomitant]
     Indication: PRODUCT USED FOR UNKNOWN INDICATION

REACTIONS (8)
  - Fall [Recovered/Resolved]
  - Epilepsy [Recovering/Resolving]
  - Road traffic accident [Recovered/Resolved]
  - Fall [Unknown]
  - Head injury [Recovered/Resolved]
  - Libido decreased [Not Recovered/Not Resolved]
  - Fall [Recovering/Resolving]
  - Abnormal dreams [Not Recovered/Not Resolved]
